FAERS Safety Report 15881303 (Version 3)
Quarter: 2020Q1

REPORT INFORMATION
  Report Type: Report from Study
  Country: US (occurrence: US)
  Receive Date: 20190128
  Receipt Date: 20200316
  Transmission Date: 20200409
  Serious: Yes (Hospitalization)
  Sender: FDA-Public Use
  Company Number: US-ACTELION-A-US2017-150178

PATIENT
  Age: 72 Year
  Sex: Female
  Weight: 146.94 kg

DRUGS (3)
  1. TRACLEER [Suspect]
     Active Substance: BOSENTAN
     Indication: PULMONARY ARTERIAL HYPERTENSION
     Dosage: 125 MG, BID
     Route: 048
  2. ELIQUIS [Concomitant]
     Active Substance: APIXABAN
  3. WARFARIN [Concomitant]
     Active Substance: WARFARIN
     Dosage: UNK

REACTIONS (11)
  - Diarrhoea [Recovering/Resolving]
  - Product dose omission [Unknown]
  - Fluid retention [Unknown]
  - Dyspnoea [Unknown]
  - Unevaluable event [Unknown]
  - Feeling abnormal [Recovering/Resolving]
  - Cellulitis [Unknown]
  - Influenza [Recovering/Resolving]
  - Uterine haemorrhage [Unknown]
  - Nausea [Recovering/Resolving]
  - Rehabilitation therapy [Unknown]

NARRATIVE: CASE EVENT DATE: 20170214
